FAERS Safety Report 6496253-9 (Version None)
Quarter: 2009Q4

REPORT INFORMATION
  Report Type: 
  Country: None (occurrence: None)
  Receive Date: 20091214
  Receipt Date: 20091209
  Transmission Date: 20100525
  Serious: Yes (Life-Threatening, Hospitalization)
  Sender: FDA-Public Use
  Company Number: FR-EISAI INC.-E2020-05691-SPO-FR

PATIENT
  Sex: Male

DRUGS (7)
  1. ARICEPT [Suspect]
     Route: 048
     Dates: start: 20080901, end: 20090901
  2. ARICEPT [Suspect]
     Route: 048
     Dates: start: 20090901
  3. MEMANTINE [Concomitant]
     Route: 048
  4. FENOFIBRATE [Concomitant]
     Route: 048
  5. MEPROBAMATE [Concomitant]
     Route: 048
  6. ALLOPURINOL [Concomitant]
     Route: 048
  7. OXAZEPAM [Concomitant]
     Route: 048

REACTIONS (7)
  - AGITATION [None]
  - ATRIOVENTRICULAR BLOCK SECOND DEGREE [None]
  - BRADYCARDIA [None]
  - HYPOTENSION [None]
  - RESTLESSNESS [None]
  - SHOCK [None]
  - SYNCOPE [None]
